FAERS Safety Report 12354387 (Version 4)
Quarter: 2016Q3

REPORT INFORMATION
  Report Type: Spontaneous
  Country: DE (occurrence: GB)
  Receive Date: 20160511
  Receipt Date: 20160715
  Transmission Date: 20161109
  Serious: Yes (Hospitalization)
  Sender: FDA-Public Use
  Company Number: DE-009507513-1605GBR004072

PATIENT
  Age: 19 Year
  Sex: Female

DRUGS (2)
  1. IMPLANON [Suspect]
     Active Substance: ETONOGESTREL
     Indication: CONTRACEPTION
     Dosage: UNK
     Route: 058
     Dates: start: 20160225
  2. CERAZETTE [Suspect]
     Active Substance: DESOGESTREL
     Indication: MENORRHAGIA
     Dosage: UNK
     Route: 048
     Dates: start: 20160418, end: 20160506

REACTIONS (8)
  - Nausea [Unknown]
  - Product use issue [Unknown]
  - Menorrhagia [Unknown]
  - Dizziness [Unknown]
  - Hypoaesthesia [Unknown]
  - Headache [Recovered/Resolved]
  - Visual impairment [Unknown]
  - Vomiting [Unknown]

NARRATIVE: CASE EVENT DATE: 201603
